FAERS Safety Report 25735644 (Version 1)
Quarter: 2025Q3

REPORT INFORMATION
  Report Type: Spontaneous
  Country: EU (occurrence: EU)
  Receive Date: 20250828
  Receipt Date: 20250828
  Transmission Date: 20251021
  Serious: Yes (Other)
  Sender: RECKITT BENCKISER
  Company Number: EU-INDIVIOR UK LIMITED-INDV-173267-2025

PATIENT
  Sex: Male

DRUGS (1)
  1. SUBUTEX [Suspect]
     Active Substance: BUPRENORPHINE HYDROCHLORIDE
     Indication: Product used for unknown indication
     Route: 051

REACTIONS (7)
  - Suicide attempt [Unknown]
  - Accidental overdose [Unknown]
  - Drug tolerance increased [Unknown]
  - Vascular compression [Unknown]
  - Substance abuse [Unknown]
  - Injection site abscess [Unknown]
  - Intentional product use issue [Unknown]
